FAERS Safety Report 23946823 (Version 1)
Quarter: 2024Q2

REPORT INFORMATION
  Report Type: Spontaneous
  Country: CN (occurrence: CN)
  Receive Date: 20240606
  Receipt Date: 20240606
  Transmission Date: 20240716
  Serious: Yes (Other)
  Sender: FDA-Public Use
  Company Number: CN-ORGANON-O2406CHN000215

PATIENT
  Age: 50 Year
  Sex: Female
  Weight: 67 kg

DRUGS (1)
  1. DIPROSPAN [Suspect]
     Active Substance: BETAMETHASONE DIPROPIONATE\BETAMETHASONE SODIUM PHOSPHATE
     Indication: Epicondylitis
     Dosage: INTRA-ARTICULAR ADMINISTRATION, 1ML, QD
     Route: 014
     Dates: start: 20240513, end: 20240513

REACTIONS (4)
  - Injection site pain [Recovering/Resolving]
  - Asthenia [Recovering/Resolving]
  - Injection site swelling [Unknown]
  - Insomnia [Recovered/Resolved]

NARRATIVE: CASE EVENT DATE: 20240513
